FAERS Safety Report 22393733 (Version 2)
Quarter: 2023Q2

REPORT INFORMATION
  Report Type: Report from Study
  Country: DE (occurrence: DE)
  Receive Date: 20230601
  Receipt Date: 20230602
  Transmission Date: 20230721
  Serious: Yes (Hospitalization)
  Sender: FDA-Public Use
  Company Number: DE-ABBVIE-5186354

PATIENT
  Sex: Male

DRUGS (1)
  1. SKYRIZI [Suspect]
     Active Substance: RISANKIZUMAB-RZAA
     Indication: Psoriasis
     Route: 058
     Dates: start: 20221219

REACTIONS (7)
  - CSF culture [Recovered/Resolved]
  - Neck pain [Not Recovered/Not Resolved]
  - Tremor [Not Recovered/Not Resolved]
  - Impatience [Not Recovered/Not Resolved]
  - Muscle twitching [Not Recovered/Not Resolved]
  - Mood altered [Not Recovered/Not Resolved]
  - Aggression [Not Recovered/Not Resolved]

NARRATIVE: CASE EVENT DATE: 20220101
